FAERS Safety Report 13929537 (Version 1)
Quarter: 2017Q3

REPORT INFORMATION
  Report Type: Spontaneous
  Country: IT (occurrence: IT)
  Receive Date: 20170901
  Receipt Date: 20170901
  Transmission Date: 20171127
  Serious: Yes (Hospitalization)
  Sender: FDA-Public Use
  Company Number: IT-UNICHEM LABORATORIES LIMITED-UCM201708-000222

PATIENT
  Age: 70 Year
  Sex: Female

DRUGS (12)
  1. CODEINE [Concomitant]
     Active Substance: CODEINE
     Indication: MIGRAINE
  2. VALPROATE [Concomitant]
     Active Substance: VALPROIC ACID
  3. DIAZEPAM. [Concomitant]
     Active Substance: DIAZEPAM
     Indication: AGITATION
     Route: 048
  4. INDOMETHACIN. [Concomitant]
     Active Substance: INDOMETHACIN
  5. TOPIRAMATE. [Concomitant]
     Active Substance: TOPIRAMATE
  6. ACETAMINOPHEN. [Concomitant]
     Active Substance: ACETAMINOPHEN
     Indication: MIGRAINE
  7. PROPRANOLOL [Concomitant]
     Active Substance: PROPRANOLOL HYDROCHLORIDE
  8. RIZATRIPTAN. [Suspect]
     Active Substance: RIZATRIPTAN
  9. ACETAMINOPHEN. [Concomitant]
     Active Substance: ACETAMINOPHEN
  10. VENLAFAXINE [Suspect]
     Active Substance: VENLAFAXINE HYDROCHLORIDE
     Dosage: 150 MG IN   THE MORNING AND 75 MG IN THE AFTERNOON
  11. AMITRIPTYLINE [Concomitant]
     Active Substance: AMITRIPTYLINE
  12. DIAZEPAM. [Concomitant]
     Active Substance: DIAZEPAM
     Route: 048

REACTIONS (2)
  - Serotonin syndrome [Recovered/Resolved]
  - Drug interaction [Recovered/Resolved]
